FAERS Safety Report 13407705 (Version 1)
Quarter: 2017Q2

REPORT INFORMATION
  Report Type: Spontaneous
  Country: US (occurrence: US)
  Receive Date: 20170406
  Receipt Date: 20170406
  Transmission Date: 20170830
  Serious: No
  Sender: FDA-Public Use
  Company Number: US-ENDO PHARMACEUTICALS INC-2016SCPR016110

PATIENT
  Sex: Female

DRUGS (3)
  1. URSODIOL. [Suspect]
     Active Substance: URSODIOL
     Indication: BLOOD PHOSPHORUS ABNORMAL
     Dosage: UNK, UNKNOWN
     Route: 048
     Dates: start: 20150918, end: 2016
  2. URSODIOL. [Suspect]
     Active Substance: URSODIOL
     Dosage: UNK, UNKNOWN
     Route: 048
     Dates: start: 2016, end: 20161109
  3. PRINIVIL [Concomitant]
     Active Substance: LISINOPRIL
     Indication: HYPERTENSION
     Dosage: UNK, UNKNOWN
     Route: 048

REACTIONS (3)
  - Off label use [Unknown]
  - Abdominal discomfort [Recovered/Resolved]
  - Diarrhoea [Recovered/Resolved]

NARRATIVE: CASE EVENT DATE: 2015
